FAERS Safety Report 25825266 (Version 1)
Quarter: 2025Q3

REPORT INFORMATION
  Report Type: Spontaneous
  Country: US (occurrence: US)
  Receive Date: 20250919
  Receipt Date: 20250919
  Transmission Date: 20251021
  Serious: Yes (Other)
  Sender: PURDUE
  Company Number: US-PURDUE-USA-2025-0320672

PATIENT
  Age: 49 Year
  Sex: Male

DRUGS (1)
  1. DEXTROAMPHETAMINE SACCHARATE, AMPHETAMINE ASPARTATE, DEXTROAMPHETAMINE [Suspect]
     Active Substance: AMPHETAMINE ASPARTATE\AMPHETAMINE SULFATE\DEXTROAMPHETAMINE SACCHARATE\DEXTROAMPHETAMINE SULFATE
     Indication: Product used for unknown indication
     Route: 048

REACTIONS (4)
  - Toxicity to various agents [Unknown]
  - Miosis [Unknown]
  - Dyskinesia [Unknown]
  - Logorrhoea [Unknown]

NARRATIVE: CASE EVENT DATE: 20250901
